FAERS Safety Report 24440271 (Version 2)
Quarter: 2025Q4

REPORT INFORMATION
  Report Type: Spontaneous
  Country: US (occurrence: US)
  Receive Date: 20241016
  Receipt Date: 20251013
  Transmission Date: 20260117
  Serious: No
  Sender: RANBAXY
  Company Number: US-SUN PHARMACEUTICAL INDUSTRIES LTD-2024R1-453878

PATIENT

DRUGS (2)
  1. WINLEVI [Suspect]
     Active Substance: CLASCOTERONE
     Indication: Product used for unknown indication
     Dosage: UNK UNK, BID
     Route: 065
  2. WINLEVI [Suspect]
     Active Substance: CLASCOTERONE
     Dosage: UNK UNK, QD
     Route: 065

REACTIONS (5)
  - Skin burning sensation [Unknown]
  - Inflammation [Unknown]
  - Skin erosion [Unknown]
  - Pustule [Unknown]
  - Condition aggravated [Unknown]
